FAERS Safety Report 9150283 (Version 2)
Quarter: 2013Q2

REPORT INFORMATION
  Report Type: Spontaneous
  Country: CN (occurrence: CN)
  Receive Date: 20130308
  Receipt Date: 20130402
  Transmission Date: 20140414
  Serious: Yes (Death)
  Sender: FDA-Public Use
  Company Number: CN-009507513-1303CHN002884

PATIENT
  Age: 12 Year
  Sex: Male
  Weight: 27 kg

DRUGS (3)
  1. ROCURONIUM BROMIDE [Suspect]
     Indication: ANAESTHESIA
     Dosage: 30 MG, ONCE
     Route: 042
     Dates: start: 20130225, end: 20130225
  2. FENTANYL [Concomitant]
     Indication: ANAESTHESIA
     Dosage: 0.05 MG, ONCE
     Route: 042
     Dates: start: 20130225, end: 20130225
  3. PROPOFOL [Concomitant]
     Indication: ANAESTHESIA
     Dosage: 75 MG, ONCE
     Route: 042
     Dates: start: 20130225, end: 20130225

REACTIONS (6)
  - Bronchospasm [Fatal]
  - Overdose [Unknown]
  - Acidosis [Fatal]
  - Cardioversion [Fatal]
  - Bladder catheterisation [Fatal]
  - Cardiac failure [Fatal]
